FAERS Safety Report 4657452-1 (Version None)
Quarter: 2005Q2

REPORT INFORMATION
  Report Type: 
  Country: None (occurrence: None)
  Receive Date: 20050506
  Receipt Date: 20050506
  Transmission Date: 20051028
  Serious: No
  Sender: FDA-Public Use
  Company Number: None

PATIENT
  Sex: Female
  Weight: 168 kg

DRUGS (1)
  1. MELPHALAN [Suspect]
     Indication: MULTIPLE MYELOMA
     Dosage: 200 MG/M2, IV OVER 15-30 MINUTES ON DAY MINUS 2
     Route: 042
     Dates: start: 20040923

REACTIONS (1)
  - BLOOD CALCIUM INCREASED [None]
